FAERS Safety Report 14246288 (Version 1)
Quarter: 2017Q4

REPORT INFORMATION
  Report Type: Spontaneous
  Country: US (occurrence: None)
  Receive Date: 20171201
  Receipt Date: 20171201
  Transmission Date: 20180321
  Serious: Yes (Hospitalization)
  Sender: FDA-Public Use
  Company Number: None

PATIENT
  Age: 62 Year
  Sex: Male
  Weight: 95.3 kg

DRUGS (2)
  1. CLOPIDOGREL [Concomitant]
     Active Substance: CLOPIDOGREL BISULFATE
  2. XELODA [Suspect]
     Active Substance: CAPECITABINE
     Dates: end: 20171005

REACTIONS (4)
  - Dehydration [None]
  - Malaise [None]
  - Intra-abdominal fluid collection [None]
  - Anastomotic leak [None]

NARRATIVE: CASE EVENT DATE: 20171127
